APPROVED DRUG PRODUCT: ADAPALENE
Active Ingredient: ADAPALENE
Strength: 0.3%
Dosage Form/Route: GEL;TOPICAL
Application: A201000 | Product #001 | TE Code: AB
Applicant: ACTAVIS MID ATLANTIC LLC
Approved: Oct 27, 2014 | RLD: No | RS: No | Type: RX